FAERS Safety Report 6884616-9 (Version None)
Quarter: 2010Q3

REPORT INFORMATION
  Report Type: 
  Country: None (occurrence: None)
  Receive Date: 20100729
  Receipt Date: 20070712
  Transmission Date: 20110219
  Serious: Yes (Hospitalization)
  Sender: FDA-Public Use
  Company Number: US-PFIZER INC-2007058384

PATIENT
  Sex: Male
  Weight: 113.4 kg

DRUGS (14)
  1. CELEBREX [Suspect]
     Indication: ARTHRITIS
     Route: 048
     Dates: start: 20020101
  2. IBUPROFEN TABLETS [Concomitant]
  3. ACETYLSALICYLIC ACID SRT [Concomitant]
  4. CODEINE [Concomitant]
  5. DARVOCET [Concomitant]
  6. DEMEROL [Concomitant]
  7. MOBIC [Concomitant]
  8. MORPHINE [Concomitant]
  9. OXYCONTIN [Concomitant]
  10. PERCOCET [Concomitant]
  11. ACETAMINOPHEN [Concomitant]
  12. ULTRAM [Concomitant]
  13. ROFECOXIB [Concomitant]
  14. DICLOFENAC [Concomitant]

REACTIONS (2)
  - CEREBROVASCULAR ACCIDENT [None]
  - MYOCARDIAL INFARCTION [None]
